FAERS Safety Report 4787223-7 (Version None)
Quarter: 2005Q4

REPORT INFORMATION
  Report Type: 
  Country: None (occurrence: None)
  Receive Date: 20051004
  Receipt Date: 20050916
  Transmission Date: 20060501
  Serious: Yes (Death)
  Sender: FDA-Public Use
  Company Number: ES-ROCHE-418056

PATIENT
  Age: 42 Year
  Sex: Male
  Weight: 90 kg

DRUGS (5)
  1. PEGASYS [Suspect]
     Route: 058
     Dates: start: 20050621, end: 20050719
  2. COPEGUS [Concomitant]
     Route: 048
     Dates: start: 20050621, end: 20050719
  3. GABAPENTIN [Concomitant]
     Route: 048
     Dates: start: 20010615
  4. AZATHIOPRINE [Concomitant]
     Route: 048
     Dates: start: 20031210
  5. PREDNISONE [Concomitant]
     Dosage: FROM 10 DEC 2003 TO 16 DEC 2003 TDD OF 60 MG, FROM 17 DEC 2003 TO 23 DEC 2003 TDD 40 MG, FROM 24 DE+
     Route: 048
     Dates: start: 20031210

REACTIONS (10)
  - BLOOD PRESSURE DECREASED [None]
  - BRONCHOPULMONARY ASPERGILLOSIS [None]
  - ESCHERICHIA INFECTION [None]
  - HAEMODYNAMIC INSTABILITY [None]
  - HEART RATE INCREASED [None]
  - METABOLIC ACIDOSIS [None]
  - MULTI-ORGAN FAILURE [None]
  - PERITONITIS BACTERIAL [None]
  - PLATELET COUNT DECREASED [None]
  - RENAL FAILURE [None]
